FAERS Safety Report 9383081 (Version 2)
Quarter: 2014Q2

REPORT INFORMATION
  Report Type: Spontaneous
  Country: IT (occurrence: IT)
  Receive Date: 20130704
  Receipt Date: 20140423
  Transmission Date: 20141212
  Serious: Yes (Other)
  Sender: FDA-Public Use
  Company Number: IT-ROCHE-1243448

PATIENT
  Age: 54 Year
  Sex: Female

DRUGS (5)
  1. AVASTIN [Suspect]
     Indication: BREAST CANCER METASTATIC
     Dosage: DAY 1 AND 15, EVERY 28 DAYS
     Route: 042
     Dates: start: 20120801, end: 20130307
  2. PANTORC [Concomitant]
     Route: 065
  3. SOLDESAM [Concomitant]
     Route: 065
  4. ZOMETA [Concomitant]
     Dosage: DAY 1, EVERY 28 DAYS
     Route: 065
     Dates: start: 20111007, end: 20130307
  5. PACLITAXEL [Concomitant]
     Dosage: DAY 1,8,15, EVERY 28 DAYS
     Route: 065
     Dates: start: 20120801, end: 20130208

REACTIONS (2)
  - Rhinorrhoea [Not Recovered/Not Resolved]
  - Female genital tract fistula [Not Recovered/Not Resolved]
